FAERS Safety Report 8679506 (Version 2)
Quarter: 2012Q4

REPORT INFORMATION
  Report Type: 
  Country: TR (occurrence: TR)
  Receive Date: 20120724
  Receipt Date: 20120910
  Transmission Date: 20130627
  Serious: Yes (Hospitalization)
  Sender: FDA-Public Use
  Company Number: TR-PFIZER INC-2012173191

PATIENT
  Age: 68 Year
  Sex: Female

DRUGS (2)
  1. CISPLATIN [Suspect]
     Indication: LUNG ADENOCARCINOMA
     Dosage: 100 mg/m2, on Day 1 every 28 days
     Route: 042
  2. GEMZAR [Suspect]
     Indication: LUNG ADENOCARCINOMA
     Dosage: 1000 mg/m2, on Days 1, 8 + 15 every 28 days
     Route: 042

REACTIONS (1)
  - Pancreatitis acute [Recovered/Resolved]
